FAERS Safety Report 8827901 (Version 2)
Quarter: 2012Q4

REPORT INFORMATION
  Report Type: 
  Country: US (occurrence: US)
  Receive Date: 20121005
  Receipt Date: 20121026
  Transmission Date: 20130627
  Serious: No
  Sender: FDA-Public Use
  Company Number: US-VERTEX PHARMACEUTICAL INC.-2012-021339

PATIENT
  Sex: Female
  Weight: 83.9 kg

DRUGS (7)
  1. VX-950 [Suspect]
     Indication: HEPATITIS C
     Dosage: 750 mg, tid
     Route: 048
     Dates: start: 2012, end: 201208
  2. RIBASPHERE [Concomitant]
     Indication: HEPATITIS C
     Dosage: UNK, bid
     Route: 048
     Dates: start: 2012
  3. PEGINTRON                          /01543001/ [Concomitant]
     Indication: HEPATITIS C
     Dosage: 120 ?g, UNK
     Route: 058
     Dates: start: 2012
  4. VITAMIN D3 [Concomitant]
     Dosage: 1000 ut, qd
     Route: 048
  5. LORAZEPAM [Concomitant]
     Dosage: 0.5 mg, qd
  6. METOPROLOL SUCCINATE [Concomitant]
     Dosage: 100 mg, qd
  7. MULTIVITAMIN                       /00097801/ [Concomitant]
     Dosage: UNK, qd

REACTIONS (7)
  - Depression [Unknown]
  - Alopecia [Unknown]
  - Dry skin [Unknown]
  - Skin discolouration [Unknown]
  - Fatigue [Unknown]
  - Anaemia [Unknown]
  - Pruritus [Unknown]
